FAERS Safety Report 8452980-5 (Version None)
Quarter: 2012Q2

REPORT INFORMATION
  Report Type: 
  Country: None (occurrence: None)
  Receive Date: 20120620
  Receipt Date: 20120502
  Transmission Date: 20120825
  Serious: No
  Sender: FDA-Public Use
  Company Number: US-VERTEX PHARMACEUTICALS INC.-AE-2012-006413

PATIENT
  Sex: Female
  Weight: 71.278 kg

DRUGS (3)
  1. INCIVEK [Suspect]
     Indication: HEPATITIS C
     Route: 048
     Dates: start: 20120425
  2. RIBASPHERE [Concomitant]
     Indication: HEPATITIS C
     Dates: start: 20120425
  3. PEGASYS [Concomitant]
     Indication: HEPATITIS C
     Dates: start: 20120425

REACTIONS (2)
  - RASH GENERALISED [None]
  - PRURITUS [None]
